FAERS Safety Report 7312366-3 (Version None)
Quarter: 2011Q1

REPORT INFORMATION
  Report Type: 
  Country: None (occurrence: None)
  Receive Date: 20110224
  Receipt Date: 20110131
  Transmission Date: 20110831
  Serious: No
  Sender: FDA-Public Use
  Company Number: US-B.I. PHARMACEUTICALS,INC./RIDGEFIELD-2011-BP-03183BP

PATIENT
  Age: 57 Year
  Sex: Male

DRUGS (5)
  1. MICARDIS [Suspect]
     Indication: HYPERTENSION
     Dosage: 40 MG
     Route: 048
     Dates: start: 20101201
  2. LOVAZA [Concomitant]
  3. 81 MG BABY ASA [Concomitant]
  4. DAILY VITAMINS [Concomitant]
  5. FLAX SEED [Concomitant]

REACTIONS (3)
  - LIBIDO DECREASED [None]
  - CHEST DISCOMFORT [None]
  - DIZZINESS [None]
